FAERS Safety Report 9204406 (Version 1)
Quarter: 2013Q2

REPORT INFORMATION
  Report Type: Spontaneous
  Country: FR (occurrence: FR)
  Receive Date: 20130402
  Receipt Date: 20130402
  Transmission Date: 20140414
  Serious: Yes (Hospitalization)
  Sender: FDA-Public Use
  Company Number: FR-JNJFOC-20130311455

PATIENT
  Age: 49 Year
  Sex: Male

DRUGS (7)
  1. RISPERDAL CONSTA [Suspect]
     Indication: SCHIZOPHRENIA
     Dosage: SINCE 15 YEARS
     Route: 030
  2. RISPERDAL CONSTA [Suspect]
     Indication: SCHIZOPHRENIA
     Route: 030
     Dates: start: 20120212, end: 20130105
  3. RISPERDAL [Suspect]
     Indication: SCHIZOPHRENIA
     Route: 048
     Dates: start: 20130130, end: 20130204
  4. TERCIAN [Suspect]
     Indication: SCHIZOPHRENIA
     Route: 048
     Dates: end: 20130204
  5. AKINETON [Concomitant]
     Route: 065
  6. AVLOCARDYL [Concomitant]
     Route: 065
  7. DEPAKOTE [Concomitant]
     Route: 065

REACTIONS (5)
  - Neuroleptic malignant syndrome [Recovered/Resolved]
  - Confusional state [Unknown]
  - Disturbance in attention [Unknown]
  - Intentional overdose [Unknown]
  - Aneurysm [Unknown]
